FAERS Safety Report 19507139 (Version 1)
Quarter: 2021Q3

REPORT INFORMATION
  Report Type: Spontaneous
  Country: CN (occurrence: CN)
  Receive Date: 20210708
  Receipt Date: 20210708
  Transmission Date: 20211014
  Serious: Yes (Hospitalization)
  Sender: FDA-Public Use
  Company Number: CN-PFIZER INC-2021767210

PATIENT
  Age: 64 Year
  Sex: Male

DRUGS (10)
  1. MEDROL [Suspect]
     Active Substance: METHYLPREDNISOLONE
     Indication: ECZEMA
     Dosage: 16 MG, 2X/DAY
     Route: 048
     Dates: start: 20210129, end: 20210220
  2. MEDROL [Suspect]
     Active Substance: METHYLPREDNISOLONE
     Dosage: 12 MG, 1X/DAY
     Route: 048
     Dates: start: 20210307, end: 20210319
  3. MEDROL [Suspect]
     Active Substance: METHYLPREDNISOLONE
     Dosage: 6 MG,1X/DAY
     Route: 048
     Dates: start: 20210403, end: 20210612
  4. THALIDOMIDE [Suspect]
     Active Substance: THALIDOMIDE
     Indication: ECZEMA
     Dosage: 50 MG, 1X/DAY
     Route: 048
     Dates: start: 20210505, end: 20210612
  5. FEN LE [HYDROXYCHLOROQUINE SULFATE] [Suspect]
     Active Substance: HYDROXYCHLOROQUINE SULFATE
     Indication: ECZEMA
     Dosage: 200 MG, 2X/DAY
     Route: 048
     Dates: start: 20210129, end: 20210612
  6. MEDROL [Suspect]
     Active Substance: METHYLPREDNISOLONE
     Dosage: 8 MG,1X/DAY
     Route: 048
     Dates: start: 20210320, end: 20210402
  7. THALIDOMIDE [Suspect]
     Active Substance: THALIDOMIDE
     Indication: ANTIALLERGIC THERAPY
  8. MEDROL [Suspect]
     Active Substance: METHYLPREDNISOLONE
     Indication: ANTIALLERGIC THERAPY
     Dosage: 8 MG, 2X/DAY
     Route: 048
     Dates: start: 20210221, end: 20210306
  9. FEN LE [HYDROXYCHLOROQUINE SULFATE] [Suspect]
     Active Substance: HYDROXYCHLOROQUINE SULFATE
     Indication: ANTIALLERGIC THERAPY
  10. SI JIN [Concomitant]
     Indication: ECZEMA
     Dosage: 10 MG, 1X/DAY
     Route: 048
     Dates: start: 20210129, end: 20210622

REACTIONS (4)
  - International normalised ratio increased [Unknown]
  - Thrombin time prolonged [Unknown]
  - Cholestatic liver injury [Recovering/Resolving]
  - Activated partial thromboplastin time prolonged [Unknown]

NARRATIVE: CASE EVENT DATE: 20210610
